FAERS Safety Report 12138410 (Version 1)
Quarter: 2016Q1

REPORT INFORMATION
  Report Type: Spontaneous
  Country: AU (occurrence: AU)
  Receive Date: 20160302
  Receipt Date: 20160302
  Transmission Date: 20160526
  Serious: Yes (Other)
  Sender: FDA-Public Use
  Company Number: AU-UNICHEM LABORATORIES LIMITED-UCM201602-000024

PATIENT
  Age: 30 Year
  Sex: Male

DRUGS (2)
  1. AMOXYCILLIN [Concomitant]
     Active Substance: AMOXICILLIN
     Indication: GINGIVITIS
  2. METRONIDAZOLE. [Suspect]
     Active Substance: METRONIDAZOLE
     Indication: GINGIVITIS

REACTIONS (6)
  - Myalgia [Unknown]
  - Headache [Recovered/Resolved]
  - Deafness neurosensory [Recovering/Resolving]
  - Off label use [Unknown]
  - Ototoxicity [Recovering/Resolving]
  - Paraesthesia [Recovered/Resolved]
